FAERS Safety Report 16268811 (Version 1)
Quarter: 2019Q2

REPORT INFORMATION
  Report Type: Spontaneous
  Country: NL (occurrence: NL)
  Receive Date: 20190503
  Receipt Date: 20190503
  Transmission Date: 20190711
  Serious: Yes (Other)
  Sender: FDA-Public Use
  Company Number: NL-ACCORD-125586

PATIENT
  Age: 44 Year
  Sex: Female
  Weight: 75 kg

DRUGS (7)
  1. UTROGESTAN [Concomitant]
     Active Substance: PROGESTERONE
     Dosage: STRENGTH: 200 MG
     Dates: start: 20181206
  2. AMINOACETIC ACID [Concomitant]
     Active Substance: GLYCINE
     Dates: start: 20181002
  3. AMITRIPTYLINE [Suspect]
     Active Substance: AMITRIPTYLINE
     Indication: PRODUCT USED FOR UNKNOWN INDICATION
     Dosage: STRENGTH:25 MG
     Dates: start: 20161001
  4. CYANOCOBALAMIN. [Concomitant]
     Active Substance: CYANOCOBALAMIN
     Dosage: STRENGTH:6000 M
     Dates: start: 20180915
  5. NALTREXONE [Interacting]
     Active Substance: NALTREXONE
     Indication: STRESS
     Dosage: 1 CAPSULE PER DAY, STRENGTH:1.5 MG
     Dates: start: 20181207, end: 20181209
  6. COLECALCIFEROL [Concomitant]
     Active Substance: CHOLECALCIFEROL
     Dates: start: 20180915
  7. TRAMADOL. [Interacting]
     Active Substance: TRAMADOL
     Indication: PRODUCT USED FOR UNKNOWN INDICATION
     Dosage: 50 MG PER DAY
     Dates: start: 20161001

REACTIONS (10)
  - Fatigue [Recovering/Resolving]
  - Speech disorder [Recovering/Resolving]
  - Depressed mood [Recovering/Resolving]
  - Feeling abnormal [Recovering/Resolving]
  - Drug interaction [Unknown]
  - Aggression [Recovering/Resolving]
  - Product label issue [Unknown]
  - Irritability [Recovering/Resolving]
  - Somnolence [Recovering/Resolving]
  - Gaze palsy [Recovering/Resolving]

NARRATIVE: CASE EVENT DATE: 20181209
